FAERS Safety Report 10676434 (Version 1)
Quarter: 2014Q4

REPORT INFORMATION
  Report Type: Spontaneous
  Country: JP (occurrence: JP)
  Receive Date: 20141226
  Receipt Date: 20141226
  Transmission Date: 20150529
  Serious: Yes (Other)
  Sender: FDA-Public Use
  Company Number: JP-CIPLA LTD.-2014JP02938

PATIENT

DRUGS (11)
  1. IRINOTECAN [Suspect]
     Active Substance: IRINOTECAN
     Indication: TESTICULAR GERM CELL TUMOUR MIXED
  2. ETOPOSIDE. [Suspect]
     Active Substance: ETOPOSIDE
  3. CISPLATIN. [Suspect]
     Active Substance: CISPLATIN
  4. BLEOMYCIN [Suspect]
     Active Substance: BLEOMYCIN SULFATE
  5. RANITIDINE [Concomitant]
     Active Substance: RANITIDINE\RANITIDINE HYDROCHLORIDE
  6. PACLITAXEL. [Suspect]
     Active Substance: PACLITAXEL
  7. DIPHENHYDRAMINE [Concomitant]
     Active Substance: DIPHENHYDRAMINE
     Dosage: 50 MG OF EACH
  8. DEXAMETHASONE. [Concomitant]
     Active Substance: DEXAMETHASONE
     Dosage: 6 MG
  9. NEDAPLATIN [Suspect]
     Active Substance: NEDAPLATIN
  10. IFOSFAMIDE. [Suspect]
     Active Substance: IFOSFAMIDE
  11. MESNA. [Concomitant]
     Active Substance: MESNA
     Dosage: 400 MG EVERY 4 H THEREAFTER FOR A TOTAL OF THREE DOSES PER DAY
     Route: 042

REACTIONS (7)
  - Thrombocytopenia [Unknown]
  - Gastritis [Unknown]
  - Metastases to liver [None]
  - Decreased appetite [Unknown]
  - Leukopenia [Unknown]
  - Nausea [Unknown]
  - Anaemia [Unknown]
